FAERS Safety Report 25329801 (Version 2)
Quarter: 2025Q2

REPORT INFORMATION
  Report Type: Report from Study
  Country: CA (occurrence: CA)
  Receive Date: 20250519
  Receipt Date: 20250612
  Transmission Date: 20250717
  Serious: Yes (Other)
  Sender: ABBVIE
  Company Number: CA-ABBVIE-6282644

PATIENT
  Sex: Female

DRUGS (1)
  1. RINVOQ [Suspect]
     Active Substance: UPADACITINIB
     Indication: Dermatitis atopic
     Route: 048
     Dates: end: 202505

REACTIONS (4)
  - Suicidal ideation [Unknown]
  - Depressed mood [Recovering/Resolving]
  - Acne [Unknown]
  - Gastric infection [Unknown]

NARRATIVE: CASE EVENT DATE: 20250101
